FAERS Safety Report 7760484-8 (Version None)
Quarter: 2011Q3

REPORT INFORMATION
  Report Type: 
  Country: None (occurrence: None)
  Receive Date: 20110919
  Receipt Date: 20110118
  Transmission Date: 20111222
  Serious: No
  Sender: FDA-Public Use
  Company Number: US-BAYER-2011-007809

PATIENT
  Sex: Female

DRUGS (1)
  1. MAGNEVIST [Suspect]

REACTIONS (1)
  - DYSPNOEA [None]
